FAERS Safety Report 5902343-9 (Version None)
Quarter: 2008Q3

REPORT INFORMATION
  Report Type: 
  Country: None (occurrence: None)
  Receive Date: 20080929
  Receipt Date: 20080924
  Transmission Date: 20090109
  Serious: Yes (Hospitalization)
  Sender: FDA-Public Use
  Company Number: BE-B.I. PHARMACEUTICALS,INC./RIDGEFIELD-2008-DE-05271GD

PATIENT
  Age: 58 Year
  Sex: Female

DRUGS (4)
  1. ATROVENT [Suspect]
     Indication: ACUTE RESPIRATORY DISTRESS SYNDROME
     Route: 055
  2. VENTOLIN [Suspect]
     Indication: ACUTE RESPIRATORY DISTRESS SYNDROME
     Route: 055
  3. OMEPRAZOLE [Concomitant]
     Dosage: 20MG
     Route: 048
  4. AKTON [Concomitant]
     Dosage: 2MCG

REACTIONS (1)
  - DRUG INEFFECTIVE [None]
